FAERS Safety Report 15520664 (Version 1)
Quarter: 2018Q4

REPORT INFORMATION
  Report Type: Report from Study
  Country: US (occurrence: US)
  Receive Date: 20181017
  Receipt Date: 20181017
  Transmission Date: 20190205
  Serious: No
  Sender: FDA-Public Use
  Company Number: US-AMGEN-USASL2018112420

PATIENT
  Sex: Female

DRUGS (1)
  1. REPATHA [Suspect]
     Active Substance: EVOLOCUMAB
     Indication: LIPIDS ABNORMAL
     Dosage: 140 MG, Q2WK
     Route: 065
     Dates: start: 201807

REACTIONS (5)
  - Neck pain [Unknown]
  - Dry eye [Unknown]
  - Insomnia [Unknown]
  - Back pain [Unknown]
  - Malaise [Unknown]

NARRATIVE: CASE EVENT DATE: 2018
